FAERS Safety Report 18185972 (Version 1)
Quarter: 2020Q3

REPORT INFORMATION
  Report Type: Spontaneous
  Country: US (occurrence: US)
  Receive Date: 20200824
  Receipt Date: 20200824
  Transmission Date: 20201103
  Serious: No
  Sender: FDA-Public Use
  Company Number: US-ALLERGAN-2008385US

PATIENT
  Sex: Female

DRUGS (4)
  1. FETZIMA [Suspect]
     Active Substance: LEVOMILNACIPRAN HYDROCHLORIDE
     Dosage: 20 MG, BID
     Route: 048
  2. FETZIMA [Suspect]
     Active Substance: LEVOMILNACIPRAN HYDROCHLORIDE
     Dosage: 40 MG, QD
     Route: 048
  3. ADDERALL [Concomitant]
     Active Substance: AMPHETAMINE ASPARTATE\AMPHETAMINE SULFATE\DEXTROAMPHETAMINE SACCHARATE\DEXTROAMPHETAMINE SULFATE
     Indication: ATTENTION DEFICIT HYPERACTIVITY DISORDER
     Dosage: 60 MG
  4. FETZIMA [Suspect]
     Active Substance: LEVOMILNACIPRAN HYDROCHLORIDE
     Indication: DEPRESSION
     Dosage: 40 MG, QD
     Route: 048

REACTIONS (7)
  - Off label use [Unknown]
  - Product outer packaging issue [Unknown]
  - Asthenia [Recovered/Resolved]
  - Mental impairment [Recovered/Resolved]
  - Feeling abnormal [Recovered/Resolved]
  - Product dispensing error [Unknown]
  - Drug ineffective [Unknown]
